FAERS Safety Report 7042936-1 (Version None)
Quarter: 2010Q4

REPORT INFORMATION
  Report Type: 
  Country: None (occurrence: None)
  Receive Date: 20101013
  Receipt Date: 20100419
  Transmission Date: 20110411
  Serious: No
  Sender: FDA-Public Use
  Company Number: US-ASTRAZENECA-2010SE17186

PATIENT
  Age: 24368 Day
  Sex: Female
  Weight: 90.7 kg

DRUGS (2)
  1. SYMBICORT [Suspect]
     Indication: ASTHMA
     Dosage: 160/4.5 1 PUFF DAILY
     Route: 055
     Dates: start: 20090101
  2. LIPITOR [Concomitant]

REACTIONS (3)
  - DIARRHOEA [None]
  - FOOD POISONING [None]
  - VOMITING [None]
